FAERS Safety Report 12707227 (Version 1)
Quarter: 2016Q3

REPORT INFORMATION
  Report Type: Spontaneous
  Country: US (occurrence: US)
  Receive Date: 20160901
  Receipt Date: 20160901
  Transmission Date: 20161109
  Serious: Yes (Other)
  Sender: FDA-Public Use
  Company Number: US-ENDO PHARMACEUTICALS INC.-2016-004378

PATIENT
  Age: 59 Year
  Sex: Female
  Weight: 143.01 kg

DRUGS (8)
  1. SPIRONOLACTONE TABLETS 25MG [Suspect]
     Active Substance: SPIRONOLACTONE
     Indication: SWELLING
     Route: 048
     Dates: start: 2011, end: 20160614
  2. MAGNESIUM OXIDE TABLETS [Concomitant]
     Indication: BLOOD MAGNESIUM DECREASED
     Route: 048
     Dates: start: 2012
  3. SPIRONOLACTONE TABLETS 25MG [Suspect]
     Active Substance: SPIRONOLACTONE
     Dosage: DOSE DECREASED
     Route: 048
     Dates: start: 20160701
  4. SPIRONOLACTONE TABLETS 25MG [Suspect]
     Active Substance: SPIRONOLACTONE
     Indication: HYPERTENSION
     Route: 048
     Dates: start: 20160614, end: 20160701
  5. LANSOPRAZOLE. [Concomitant]
     Active Substance: LANSOPRAZOLE
     Indication: DYSPEPSIA
  6. MAGNESIUM OXIDE TABLETS [Concomitant]
     Indication: MUSCLE SPASMS
  7. LEVOTHYROXINE. [Concomitant]
     Active Substance: LEVOTHYROXINE
     Indication: HYPOTHYROIDISM
     Route: 065
     Dates: start: 201606
  8. LANSOPRAZOLE. [Concomitant]
     Active Substance: LANSOPRAZOLE
     Indication: GASTROOESOPHAGEAL REFLUX DISEASE
     Route: 065

REACTIONS (13)
  - Thrombosis [Unknown]
  - Lethargy [Recovered/Resolved]
  - Gastric disorder [Recovered/Resolved]
  - Sinusitis [Unknown]
  - Dizziness [Recovered/Resolved]
  - Drug ineffective [Not Recovered/Not Resolved]
  - Nervousness [Recovered/Resolved]
  - Swelling [Recovered/Resolved]
  - Asthenia [Recovered/Resolved]
  - Nausea [Recovered/Resolved]
  - Blood pressure increased [Unknown]
  - Insomnia [Not Recovered/Not Resolved]
  - Abdominal pain upper [Recovered/Resolved]

NARRATIVE: CASE EVENT DATE: 2011
